FAERS Safety Report 18439305 (Version 2)
Quarter: 2020Q4

REPORT INFORMATION
  Report Type: Report from Study
  Country: TW (occurrence: TW)
  Receive Date: 20201028
  Receipt Date: 20201215
  Transmission Date: 20210114
  Serious: Yes (Other)
  Sender: FDA-Public Use
  Company Number: TW-TAKEDA-TW202034586

PATIENT
  Age: 4 Year
  Sex: Male

DRUGS (3)
  1. PEGYLATED COAGULATION FACTOR VIII [Suspect]
     Active Substance: ANTIHEMOPHILIC FACTOR, PEGYLATED (MW 20000) HUMAN SEQUENCE RECOMBINANT
     Indication: FACTOR VIII DEFICIENCY
     Dosage: 500 INTERNATIONAL UNIT, 2/WEEK
     Route: 050
  2. PEGYLATED COAGULATION FACTOR VIII [Suspect]
     Active Substance: ANTIHEMOPHILIC FACTOR, PEGYLATED (MW 20000) HUMAN SEQUENCE RECOMBINANT
     Indication: FACTOR VIII DEFICIENCY
     Dosage: 500 INTERNATIONAL UNIT, 2/WEEK
     Route: 050
  3. PEGYLATED COAGULATION FACTOR VIII [Suspect]
     Active Substance: ANTIHEMOPHILIC FACTOR, PEGYLATED (MW 20000) HUMAN SEQUENCE RECOMBINANT
     Indication: FACTOR VIII DEFICIENCY
     Dosage: 500 INTERNATIONAL UNIT, 2/WEEK
     Route: 050

REACTIONS (2)
  - Contusion [Unknown]
  - Pyrexia [Unknown]

NARRATIVE: CASE EVENT DATE: 20201003
